FAERS Safety Report 4512369-8 (Version None)
Quarter: 2004Q4

REPORT INFORMATION
  Report Type: 
  Country: None (occurrence: None)
  Receive Date: 20041124
  Receipt Date: 20041115
  Transmission Date: 20050328
  Serious: Yes (Hospitalization)
  Sender: FDA-Public Use
  Company Number: 2004092843

PATIENT
  Age: 68 Year
  Sex: Female
  Weight: 74.8435 kg

DRUGS (2)
  1. SUDAFED SINUS HEADACHE CAPLETS (PARACETAMOL, PSEUDOEPHEDRINE) [Suspect]
     Indication: SINUSITIS
     Dosage: 2 TABLETS Q 12 HOURS, ORAL
     Route: 048
     Dates: start: 20041101, end: 20041108
  2. SUDAFED SINUS HEADACHE CAPLETS (PARACETAMOL, PSEUDOEPHEDRINE) [Suspect]

REACTIONS (3)
  - DIZZINESS [None]
  - DYSPEPSIA [None]
  - HYPERTENSION [None]
